FAERS Safety Report 18922966 (Version 1)
Quarter: 2021Q1

REPORT INFORMATION
  Report Type: Report from Study
  Country: DE (occurrence: DE)
  Receive Date: 20210222
  Receipt Date: 20210222
  Transmission Date: 20210420
  Serious: Yes (Hospitalization)
  Sender: FDA-Public Use
  Company Number: DE-RECGATEWAY-2018009994

PATIENT

DRUGS (17)
  1. METOPROLOL. [Concomitant]
     Active Substance: METOPROLOL
     Indication: HYPERTENSION
     Dosage: 142.5 MG
     Route: 048
  2. SOMAVERT [Concomitant]
     Active Substance: PEGVISOMANT
     Indication: ACROMEGALY
     Dosage: 10 MG
     Route: 058
     Dates: start: 20190329
  3. RAMIPRIL HCT [Concomitant]
     Active Substance: HYDROCHLOROTHIAZIDE\RAMIPRIL
     Indication: HYPERTENSION
     Dosage: 1 DF (5MG/12.5MG)
     Route: 048
  4. VICTOZA [Concomitant]
     Active Substance: LIRAGLUTIDE
     Indication: DIABETES MELLITUS
     Dosage: 0.6 MG
     Route: 058
     Dates: start: 20180821
  5. LANTUS [Concomitant]
     Active Substance: INSULIN GLARGINE
     Dosage: 8 UNK
     Route: 058
     Dates: start: 2018
  6. SOMAVERT [Concomitant]
     Active Substance: PEGVISOMANT
     Dosage: 10 MG
     Route: 058
     Dates: start: 20190626
  7. PASIREOTIDE 1967+UNK [Suspect]
     Active Substance: PASIREOTIDE
     Indication: ACROMEGALY
     Dosage: UNK
     Route: 065
  8. ATORVASTATIN [Concomitant]
     Active Substance: ATORVASTATIN
     Indication: HYPERCHOLESTEROLAEMIA
     Dosage: 20 MG
     Route: 048
     Dates: start: 201709
  9. OVESTIN [Concomitant]
     Active Substance: ESTRIOL
     Indication: SUPPLEMENTATION THERAPY
     Dosage: 1 DF
     Route: 065
     Dates: start: 20190702
  10. THYRONAJOD [Concomitant]
     Active Substance: LEVOTHYROXINE SODIUM\POTASSIUM IODIDE
     Indication: GOITRE
     Dosage: 1 DF
     Route: 048
     Dates: start: 2017
  11. XELEVIA [Concomitant]
     Active Substance: SITAGLIPTIN PHOSPHATE
     Indication: DIABETES MELLITUS
     Dosage: 100 MG
     Route: 048
     Dates: start: 201705
  12. JARDIANCE [Concomitant]
     Active Substance: EMPAGLIFLOZIN
     Indication: DIABETES MELLITUS
     Dosage: 10 MG
     Route: 048
     Dates: start: 2018
  13. VICTOZA [Concomitant]
     Active Substance: LIRAGLUTIDE
     Dosage: 1.8 MG
     Route: 058
     Dates: start: 2018
  14. LANTUS [Concomitant]
     Active Substance: INSULIN GLARGINE
     Indication: DIABETES MELLITUS
     Dosage: 16 UNK
     Route: 058
     Dates: start: 201804
  15. VITAMIN D [Concomitant]
     Active Substance: VITAMIN D NOS
     Indication: HYPERPARATHYROIDISM SECONDARY
     Dosage: 3000 UNK
     Route: 048
     Dates: start: 201709
  16. CALCIUM [Concomitant]
     Active Substance: CALCIUM
     Indication: HYPERPARATHYROIDISM
     Dosage: 1000 MG
     Route: 048
     Dates: start: 2019
  17. CALCIUM [Concomitant]
     Active Substance: CALCIUM
     Dosage: 500 MG
     Route: 048
     Dates: start: 20190313

REACTIONS (3)
  - Pelvic floor muscle weakness [Recovered/Resolved with Sequelae]
  - Alopecia [Recovered/Resolved with Sequelae]
  - Abdominal pain [Recovered/Resolved]

NARRATIVE: CASE EVENT DATE: 201803
